FAERS Safety Report 23178571 (Version 1)
Quarter: 2023Q4

REPORT INFORMATION
  Report Type: Spontaneous
  Country: US (occurrence: None)
  Receive Date: 20231113
  Receipt Date: 20231113
  Transmission Date: 20240110
  Serious: Yes (Hospitalization)
  Sender: FDA-Public Use
  Company Number: None

PATIENT
  Age: 81 Year
  Sex: Female

DRUGS (1)
  1. ZELBORAF [Suspect]
     Active Substance: VEMURAFENIB
     Dosage: FREQUENCY : TWICE A DAY;?

REACTIONS (10)
  - Asthenia [None]
  - Product dose omission issue [None]
  - Nausea [None]
  - Rash [None]
  - Arthralgia [None]
  - Body temperature increased [None]
  - Therapy change [None]
  - Middle ear effusion [None]
  - Hypoacusis [None]
  - Flushing [None]
